FAERS Safety Report 8343311 (Version 4)
Quarter: 2013Q4

REPORT INFORMATION
  Report Type: Spontaneous
  Country: US (occurrence: None)
  Receive Date: 20120103
  Receipt Date: 20131028
  Transmission Date: 20140711
  Serious: Yes (Other)
  Sender: FDA-Public Use
  Company Number: 2011030622

PATIENT
  Sex: Female
  Weight: 58.97 kg

DRUGS (3)
  1. HIZENTRA [Suspect]
     Indication: HYPOGAMMAGLOBULINAEMIA
     Dosage: 30 ML 1X/WEEK
     Route: 058
     Dates: start: 20111128
  2. AZITHROMYCIN [Concomitant]
  3. ZYRTEC [Concomitant]

REACTIONS (25)
  - Contusion [None]
  - Multiple allergies [None]
  - Eye infection [None]
  - Diarrhoea [None]
  - Weight increased [None]
  - Sensation of heaviness [None]
  - Fluid retention [None]
  - Abdominal distension [None]
  - Asthma [None]
  - Condition aggravated [None]
  - No therapeutic response [None]
  - Oral infection [None]
  - Infection [None]
  - Dyspnoea [None]
  - Oedema [None]
  - Treatment noncompliance [None]
  - Depression [None]
  - Headache [None]
  - Fatigue [None]
  - Irritable bowel syndrome [None]
  - Back pain [None]
  - Neck pain [None]
  - Blindness [None]
  - Sinusitis [None]
  - Gingivitis [None]
